FAERS Safety Report 13194756 (Version 1)
Quarter: 2017Q1

REPORT INFORMATION
  Report Type: Spontaneous
  Country: US (occurrence: US)
  Receive Date: 20170207
  Receipt Date: 20170207
  Transmission Date: 20170428
  Serious: No
  Sender: FDA-Public Use
  Company Number: US-JAZZ-2016-US-022568

PATIENT
  Age: 75 Year
  Sex: Female

DRUGS (4)
  1. PRIALT [Suspect]
     Active Substance: ZICONOTIDE ACETATE
     Indication: PAIN
     Dosage: 0.158 ?G, QH
     Route: 037
  2. PRIALT [Suspect]
     Active Substance: ZICONOTIDE ACETATE
     Indication: POST-TRAUMATIC NEURALGIA
     Dosage: 0.2 ?G, QH
     Route: 037
  3. BUPIVACAINE. [Suspect]
     Active Substance: BUPIVACAINE
     Indication: PAIN
     Dosage: 0.167 MG, QH
     Route: 037
     Dates: start: 20160803
  4. BUPIVACAINE. [Suspect]
     Active Substance: BUPIVACAINE
     Indication: POST-TRAUMATIC NEURALGIA

REACTIONS (4)
  - Oral discomfort [Unknown]
  - Nausea [Unknown]
  - Trigeminal nerve disorder [Unknown]
  - Pain [Unknown]

NARRATIVE: CASE EVENT DATE: 201610
